FAERS Safety Report 9665353 (Version 2)
Quarter: 2013Q4

REPORT INFORMATION
  Report Type: Spontaneous
  Country: US (occurrence: US)
  Receive Date: 20131101
  Receipt Date: 20131101
  Transmission Date: 20140711
  Serious: Yes (Other)
  Sender: FDA-Public Use
  Company Number: US-TAKEDA-TPA2013A05517

PATIENT
  Sex: 0

DRUGS (4)
  1. ACTOS [Suspect]
     Indication: TYPE 2 DIABETES MELLITUS
     Dosage: 30 MG, UNK
     Dates: start: 201005, end: 201106
  2. GLUCOPHAGE [Concomitant]
     Dosage: UNK
     Dates: start: 2008, end: 2010
  3. AMARYL [Concomitant]
     Dosage: UNK
     Dates: start: 2010
  4. KOMBIGLYZE [Concomitant]
     Dosage: 1000 MG, UNK
     Dates: start: 2012

REACTIONS (2)
  - Metastases to lymph nodes [Not Recovered/Not Resolved]
  - Bladder cancer [Not Recovered/Not Resolved]
